FAERS Safety Report 22201543 (Version 1)
Quarter: 2023Q2

REPORT INFORMATION
  Report Type: Spontaneous
  Country: SA (occurrence: SA)
  Receive Date: 20230412
  Receipt Date: 20230412
  Transmission Date: 20230721
  Serious: Yes (Death, Other)
  Sender: FDA-Public Use
  Company Number: SA-002147023-NVSC2023SA083380

PATIENT
  Age: 45 Year
  Sex: Female

DRUGS (1)
  1. KISQALI [Suspect]
     Active Substance: RIBOCICLIB
     Indication: Breast cancer metastatic
     Dosage: 600 MG (3WEEKS ON THEN ONE WEEK OFF)
     Route: 065

REACTIONS (3)
  - Death [Fatal]
  - Hepatic failure [Unknown]
  - Hepatic enzyme increased [Unknown]
